FAERS Safety Report 12374125 (Version 1)
Quarter: 2016Q2

REPORT INFORMATION
  Report Type: Spontaneous
  Country: RS (occurrence: RS)
  Receive Date: 20160517
  Receipt Date: 20160517
  Transmission Date: 20160815
  Serious: Yes (Death, Hospitalization, Other)
  Sender: FDA-Public Use
  Company Number: RS-GLENMARK PHARMACEUTICALS INC, USA.-2016GMK022922

PATIENT
  Age: 24 Year
  Sex: Female

DRUGS (3)
  1. AMLODIPINE [Suspect]
     Active Substance: AMLODIPINE BESYLATE
     Indication: PRODUCT USED FOR UNKNOWN INDICATION
     Dosage: 30 DF, UNK
     Route: 048
  2. METFORMIN HYDROCHLORIDE. [Suspect]
     Active Substance: METFORMIN HYDROCHLORIDE
     Indication: PRODUCT USED FOR UNKNOWN INDICATION
     Dosage: 20 DF, UNK
     Route: 048
  3. GLICLAZIDE [Suspect]
     Active Substance: GLICLAZIDE
     Indication: PRODUCT USED FOR UNKNOWN INDICATION
     Dosage: 30 DF, UNK
     Route: 048

REACTIONS (11)
  - Cardiac arrest [Fatal]
  - Shock [Unknown]
  - Electrocardiogram ST segment depression [Unknown]
  - Atrioventricular block first degree [Unknown]
  - Hyperglycaemia [Unknown]
  - Intentional overdose [Unknown]
  - Poisoning deliberate [Unknown]
  - Urinary retention [Unknown]
  - Hypotension [Unknown]
  - Sinus tachycardia [Unknown]
  - Metabolic acidosis [Unknown]
